APPROVED DRUG PRODUCT: HYDROXYCHLOROQUINE SULFATE
Active Ingredient: HYDROXYCHLOROQUINE SULFATE
Strength: 200MG
Dosage Form/Route: TABLET;ORAL
Application: A210959 | Product #001 | TE Code: AB
Applicant: LAURUS LABS LTD
Approved: Jan 15, 2019 | RLD: No | RS: No | Type: RX